FAERS Safety Report 5430696-7 (Version None)
Quarter: 2007Q3

REPORT INFORMATION
  Report Type: 
  Country: None (occurrence: None)
  Receive Date: 20070731
  Receipt Date: 20070509
  Transmission Date: 20080115
  Serious: No
  Sender: FDA-Public Use
  Company Number: US200705002836

PATIENT
  Sex: Female

DRUGS (3)
  1. BYETTA [Suspect]
     Indication: DRUG USE FOR UNKNOWN INDICATION
     Dosage: SUBCUTANEOUS
     Route: 058
     Dates: start: 20070101
  2. LANTUS [Concomitant]
  3. HUMALOG [Concomitant]

REACTIONS (1)
  - BLOOD GLUCOSE INCREASED [None]
